FAERS Safety Report 24685327 (Version 1)
Quarter: 2024Q4

REPORT INFORMATION
  Report Type: Report from Study
  Country: US (occurrence: US)
  Receive Date: 20241202
  Receipt Date: 20241202
  Transmission Date: 20250115
  Serious: Yes (Hospitalization)
  Sender: CHEPLAPHARM
  Company Number: US-CHEPLA-2024014977

PATIENT
  Age: 41 Year
  Sex: Male

DRUGS (3)
  1. OLANZAPINE [Suspect]
     Active Substance: OLANZAPINE
     Indication: Agitation
     Route: 042
  2. OLANZAPINE [Suspect]
     Active Substance: OLANZAPINE
     Indication: Agitation
     Route: 030
  3. ALCOHOL [Suspect]
     Active Substance: ALCOHOL

REACTIONS (4)
  - Vomiting [Unknown]
  - Hypoxia [Unknown]
  - Drug ineffective [Unknown]
  - Off label use [Unknown]
